FAERS Safety Report 13530880 (Version 1)
Quarter: 2017Q2

REPORT INFORMATION
  Report Type: Spontaneous
  Country: US (occurrence: US)
  Receive Date: 20170510
  Receipt Date: 20170510
  Transmission Date: 20170830
  Serious: No
  Sender: FDA-Public Use
  Company Number: US-BIOGEN-2017BI00397029

PATIENT
  Sex: Female

DRUGS (1)
  1. TYSABRI [Suspect]
     Active Substance: NATALIZUMAB
     Indication: MULTIPLE SCLEROSIS
     Route: 065

REACTIONS (8)
  - Loss of consciousness [Unknown]
  - Weight decreased [Unknown]
  - Fear [Unknown]
  - Aphonia [Unknown]
  - Hypotonia [Unknown]
  - Face injury [Unknown]
  - Memory impairment [Unknown]
  - Gait disturbance [Unknown]
